FAERS Safety Report 12921191 (Version 11)
Quarter: 2017Q1

REPORT INFORMATION
  Report Type: Spontaneous
  Country: AT (occurrence: AT)
  Receive Date: 20161107
  Receipt Date: 20170308
  Transmission Date: 20170428
  Serious: Yes (Hospitalization)
  Sender: FDA-Public Use
  Company Number: AT-CELGENEUS-AUT-2016111209

PATIENT
  Age: 75 Year
  Sex: Female
  Weight: 62 kg

DRUGS (35)
  1. OLEOVIT D3 [Concomitant]
     Active Substance: CHOLECALCIFEROL
     Indication: VITAMIN SUPPLEMENTATION
     Dosage: 40 GTT
     Route: 048
     Dates: start: 20150814
  2. HYDAL [Concomitant]
     Active Substance: HYDROMORPHONE HYDROCHLORIDE
     Indication: FRACTURED SACRUM
     Dosage: 16MG
     Route: 048
     Dates: start: 20150814
  3. NOVALGIN [Concomitant]
     Active Substance: METAMIZOLE SODIUM
     Indication: FRACTURED SACRUM
     Dosage: 30 GTT
     Route: 048
     Dates: start: 20160406
  4. REVLIMID [Suspect]
     Active Substance: LENALIDOMIDE
     Indication: PLASMA CELL MYELOMA
     Dosage: 25MG
     Route: 048
     Dates: start: 20150826
  5. DARATUMUMAB [Suspect]
     Active Substance: DARATUMUMAB
     Route: 041
     Dates: start: 20160824, end: 20160824
  6. AMPHO-MORONAL [Concomitant]
     Active Substance: AMPHOTERICIN B
     Indication: ANTIFUNGAL PROPHYLAXIS
     Dosage: NOT PROVIDED
     Route: 048
     Dates: start: 20150817
  7. ARANESP [Concomitant]
     Active Substance: DARBEPOETIN ALFA
     Indication: ANAEMIA
     Dosage: 150MCG
     Route: 058
     Dates: start: 20151218
  8. LOVENOX [Concomitant]
     Active Substance: ENOXAPARIN SODIUM
     Indication: THROMBOSIS PROPHYLAXIS
     Dosage: 40MG
     Route: 058
     Dates: start: 20150727
  9. HYDAL [Concomitant]
     Active Substance: HYDROMORPHONE HYDROCHLORIDE
     Route: 048
     Dates: start: 20150903
  10. EPROSARTAN [Concomitant]
     Active Substance: EPROSARTAN
     Indication: HYPERTENSION
     Dosage: 600MG
     Route: 048
     Dates: start: 20150814
  11. MOMETASON [Concomitant]
     Active Substance: MOMETASONE FUROATE
     Indication: HYPOACUSIS
     Dosage: 100MG
     Route: 065
     Dates: start: 20151022
  12. ERYTHROPOETIN [Concomitant]
     Active Substance: ERYTHROPOIETIN
     Indication: ANAEMIA
     Dosage: NOT PROVIDED
     Route: 058
     Dates: start: 20150916
  13. DEXAMETHASONE. [Suspect]
     Active Substance: DEXAMETHASONE
     Dosage: 25MG
     Route: 048
     Dates: start: 20160918, end: 20161009
  14. ZOMETA [Concomitant]
     Active Substance: ZOLEDRONIC ACID
     Indication: OSTEOPOROSIS PROPHYLAXIS
     Dosage: 4MG
     Route: 041
     Dates: start: 20150812
  15. HYDROMORPHONE [Concomitant]
     Active Substance: HYDROMORPHONE
     Dosage: 1.3MG
     Route: 048
     Dates: start: 20150903
  16. PANTOPRAZOLE [Concomitant]
     Active Substance: PANTOPRAZOLE SODIUM
     Indication: PROPHYLAXIS
     Dosage: 40MG
     Route: 048
     Dates: start: 20151104
  17. ZOLDEM [Concomitant]
     Active Substance: ZOLPIDEM TARTRATE
     Indication: INSOMNIA
     Dosage: 10MG
     Route: 048
     Dates: start: 20151022
  18. ENTEROCOCCUS FAECIUM [Concomitant]
     Indication: DIARRHOEA
     Dosage: NOT PROVIDED
     Route: 048
     Dates: start: 20160127
  19. DARATUMUMAB [Suspect]
     Active Substance: DARATUMUMAB
     Dosage: 960 MILLIGRAM
     Route: 041
     Dates: start: 20150902, end: 20160824
  20. TOLTERODIN [Concomitant]
     Indication: URGE INCONTINENCE
     Dosage: 4MG
     Route: 048
     Dates: start: 20151202
  21. REVLIMID [Suspect]
     Active Substance: LENALIDOMIDE
     Dosage: 25MG
     Route: 048
     Dates: start: 20160824, end: 20160824
  22. DARATUMUMAB [Suspect]
     Active Substance: DARATUMUMAB
     Indication: PLASMA CELL MYELOMA
     Route: 041
     Dates: start: 20150826, end: 20150916
  23. AMLODIPINE [Concomitant]
     Active Substance: AMLODIPINE BESYLATE
     Indication: HYPERTENSION
     Dosage: 5MG
     Route: 048
     Dates: start: 20150814
  24. HYDROMORPHONE HYDROCHLORIDE. [Concomitant]
     Active Substance: HYDROMORPHONE HYDROCHLORIDE
     Indication: FRACTURED SACRUM
     Route: 065
  25. DEXAMETHASONE. [Suspect]
     Active Substance: DEXAMETHASONE
     Indication: PLASMA CELL MYELOMA
     Dosage: 25MG
     Route: 048
     Dates: start: 20150826, end: 20150916
  26. CLARELUX [Concomitant]
     Active Substance: CLOBETASOL PROPIONATE
     Indication: PRURITUS
     Dosage: NOT PROVIDED
     Route: 061
     Dates: start: 20160824
  27. DEXAMETHASONE. [Suspect]
     Active Substance: DEXAMETHASONE
     Route: 048
  28. LEVOTHYROXINE. [Concomitant]
     Active Substance: LEVOTHYROXINE
     Indication: HYPOTHYROIDISM
     Dosage: 25MCG
     Route: 048
  29. CALCIUM GLYCEROPHOSPHATE\CELLULOSE\POLYETHYLENE GLYCOL\SACCHARIN SODIUM\SODIUM HYDROXIDE\SODIUM LAURYL SULFATE\SODIUM MAGNESIUM SILICATE\SODIUM MONOFLUOROPHOSPHATE\SORBITOL\WATER [Concomitant]
     Active Substance: CALCIUM GLYCEROPHOSPHATE\POLYETHYLENE GLYCOLS\POWDERED CELLULOSE\SACCHARIN SODIUM DIHYDRATE\SODIUM HYDROXIDE\SODIUM LAURYL SULFATE\SODIUM MAGNESIUM SILICATE\SODIUM MONOFLUOROPHOSPHATE\SORBITOL\WATER
     Indication: CONSTIPATION PROPHYLAXIS
     Dosage: 2 SACHET
     Route: 048
     Dates: start: 20150818
  30. VALACYCLOVIR [Concomitant]
     Active Substance: VALACYCLOVIR HYDROCHLORIDE
     Indication: ANTIVIRAL PROPHYLAXIS
     Dosage: 400MG
     Route: 048
     Dates: start: 20151105
  31. NOVALGIN [Concomitant]
     Active Substance: METAMIZOLE SODIUM
     Dosage: 40 GTT
     Route: 048
     Dates: start: 20160601
  32. SAROTEN [Concomitant]
     Active Substance: AMITRIPTYLINE
     Indication: ANTIDEPRESSANT THERAPY
     Dosage: 10MG
     Route: 048
     Dates: start: 20160407
  33. HYDROMORPHONE [Concomitant]
     Active Substance: HYDROMORPHONE
     Indication: HAEMARTHROSIS
     Dosage: 4MG
     Route: 048
  34. HYDROMORPHONE [Concomitant]
     Active Substance: HYDROMORPHONE
     Dosage: 16MG
     Route: 048
     Dates: start: 20150814
  35. CIPROFLOXACIN. [Concomitant]
     Active Substance: CIPROFLOXACIN
     Indication: URINARY TRACT INFECTION
     Dosage: NOT PROVIDED
     Route: 065

REACTIONS (1)
  - Oesophageal achalasia [Recovering/Resolving]

NARRATIVE: CASE EVENT DATE: 20161025
